FAERS Safety Report 8723296 (Version 7)
Quarter: 2014Q2

REPORT INFORMATION
  Report Type: Report from Study
  Country: BR (occurrence: BR)
  Receive Date: 20120814
  Receipt Date: 20140402
  Transmission Date: 20141212
  Serious: Yes (Hospitalization, Other)
  Sender: FDA-Public Use
  Company Number: BR-ROCHE-728336

PATIENT
  Age: 56 Year
  Sex: Female
  Weight: 40 kg

DRUGS (13)
  1. MABTHERA [Suspect]
     Indication: RHEUMATOID ARTHRITIS
     Dosage: ROUTE: ENDOVENOUS; DOSE: 500/ 50 ML; FIRST CYCLE; FORM: INFUSION
     Route: 042
     Dates: start: 20091001, end: 20091007
  2. MABTHERA [Suspect]
     Dosage: ROUTE: ENDOVENOUS; DOSE: 500/ 50 ML; SECOND CYCLE
     Route: 042
     Dates: start: 20100708, end: 20100802
  3. MABTHERA [Suspect]
     Route: 042
  4. MABTHERA [Suspect]
     Route: 042
  5. ATACAND [Concomitant]
  6. MELOXICAM [Concomitant]
  7. CELEBRA [Concomitant]
  8. OMEPRAZOLE [Concomitant]
     Indication: PROPHYLAXIS
  9. RANITIDINE [Concomitant]
  10. SELOZOK [Concomitant]
     Indication: HYPERTENSION
  11. PREDNISONE [Concomitant]
     Indication: RHEUMATOID ARTHRITIS
     Route: 065
  12. METICORTEN [Concomitant]
  13. SEDALEX [Concomitant]

REACTIONS (8)
  - Sinusitis [Recovered/Resolved]
  - Scar [Not Recovered/Not Resolved]
  - Blood pressure increased [Recovered/Resolved]
  - Immunodeficiency [Recovered/Resolved]
  - Weight decreased [Unknown]
  - Secretion discharge [Not Recovered/Not Resolved]
  - Vitamin D decreased [Unknown]
  - Lung disorder [Recovering/Resolving]
